FAERS Safety Report 14432589 (Version 1)
Quarter: 2018Q1

REPORT INFORMATION
  Report Type: Report from Study
  Country: ES (occurrence: ES)
  Receive Date: 20180124
  Receipt Date: 20180124
  Transmission Date: 20180509
  Serious: Yes (Hospitalization)
  Sender: FDA-Public Use
  Company Number: ES-JNJFOC-20180122947

PATIENT
  Age: 70 Year
  Sex: Female

DRUGS (2)
  1. OLYSIO [Suspect]
     Active Substance: SIMEPREVIR
     Indication: HEPATITIS C RNA
     Route: 048
     Dates: start: 20140814, end: 20150131
  2. DAKLINZA [Suspect]
     Active Substance: DACLATASVIR
     Indication: HEPATITIS C RNA
     Route: 048
     Dates: start: 20140814, end: 20150131

REACTIONS (3)
  - Urosepsis [Recovered/Resolved]
  - Off label use [Unknown]
  - Septic shock [Unknown]

NARRATIVE: CASE EVENT DATE: 20140814
